FAERS Safety Report 5559398-3 (Version None)
Quarter: 2007Q4

REPORT INFORMATION
  Report Type: 
  Country: None (occurrence: None)
  Receive Date: 20071214
  Receipt Date: 20070927
  Transmission Date: 20080405
  Serious: No
  Sender: FDA-Public Use
  Company Number: US-ABBOTT-07P-163-0419112-00

PATIENT
  Sex: Female

DRUGS (1)
  1. HUMIRA [Suspect]
     Indication: CROHN'S DISEASE

REACTIONS (6)
  - ABNORMAL SENSATION IN EYE [None]
  - ASTHENIA [None]
  - DIZZINESS [None]
  - HEADACHE [None]
  - RASH [None]
  - TREMOR [None]
